FAERS Safety Report 8765695 (Version 1)
Quarter: 2012Q4

REPORT INFORMATION
  Report Type: 
  Country: US (occurrence: US)
  Receive Date: 20120904
  Receipt Date: 20120904
  Transmission Date: 20130627
  Serious: Yes (Other)
  Sender: FDA-Public Use
  Company Number: PHEH2012US016855

PATIENT
  Sex: Female

DRUGS (4)
  1. ESTRADERM [Suspect]
     Dosage: 0.1 UKN, UNK
     Route: 062
  2. CLIMARA (ESTRADIOL) [Suspect]
     Dosage: 0.1 UKN, UNK
  3. MAXZIDE [Concomitant]
     Dosage: 75 mg, UNK
  4. GLIPIZIDE [Concomitant]
     Dosage: 5 mg, UNK

REACTIONS (3)
  - Type 2 diabetes mellitus [Unknown]
  - Rash [Unknown]
  - Rash pruritic [Unknown]
